FAERS Safety Report 23952436 (Version 1)
Quarter: 2024Q2

REPORT INFORMATION
  Report Type: Spontaneous
  Country: IT (occurrence: IT)
  Receive Date: 20240607
  Receipt Date: 20240607
  Transmission Date: 20240716
  Serious: Yes (Other)
  Sender: FDA-Public Use
  Company Number: None

PATIENT
  Age: 83 Year
  Sex: Female
  Weight: 33 kg

DRUGS (1)
  1. VANCOMYCIN [Suspect]
     Active Substance: VANCOMYCIN
     Indication: Sepsis
     Dosage: 500 MILLIGRAM, BID, 30MG/KG OR 500MG  X 2
     Route: 042
     Dates: start: 20240523, end: 20240528

REACTIONS (3)
  - Vancomycin infusion reaction [Recovering/Resolving]
  - Glomerular filtration rate decreased [Recovering/Resolving]
  - Blood creatine increased [Recovering/Resolving]

NARRATIVE: CASE EVENT DATE: 20240523
